FAERS Safety Report 13673861 (Version 1)
Quarter: 2017Q2

REPORT INFORMATION
  Report Type: Spontaneous
  Country: US (occurrence: US)
  Receive Date: 20170621
  Receipt Date: 20170621
  Transmission Date: 20170830
  Serious: No
  Sender: FDA-Public Use
  Company Number: US-ZYDUS-011871

PATIENT
  Age: 66 Year
  Sex: Female

DRUGS (4)
  1. TAMSULOSIN/TAMSULOSIN HYDROCHLORIDE [Suspect]
     Active Substance: TAMSULOSIN HYDROCHLORIDE
     Indication: DYSURIA
     Route: 048
     Dates: start: 20160313, end: 20160720
  2. METHENAMINE [Concomitant]
     Active Substance: METHENAMINE
     Indication: VAGINAL INFECTION
     Route: 048
     Dates: start: 20160717
  3. DIAZEPAM. [Concomitant]
     Active Substance: DIAZEPAM
     Indication: DYSURIA
     Route: 048
     Dates: start: 20160401
  4. PENTOSAN POLYSULFATE [Concomitant]
     Active Substance: PENTOSAN POLYSULFATE
     Indication: CYSTITIS
     Route: 048
     Dates: start: 2004

REACTIONS (3)
  - Insomnia [Not Recovered/Not Resolved]
  - Dysuria [Not Recovered/Not Resolved]
  - Urethral spasm [Not Recovered/Not Resolved]
